FAERS Safety Report 8119175 (Version 2)
Quarter: 2013Q2

REPORT INFORMATION
  Report Type: Spontaneous
  Country: FR (occurrence: FR)
  Receive Date: 20110902
  Receipt Date: 20130627
  Transmission Date: 20140414
  Serious: Yes (Hospitalization)
  Sender: FDA-Public Use
  Company Number: FR-GLAXOSMITHKLINE-B0742487A

PATIENT
  Age: 48 Year
  Sex: Female

DRUGS (5)
  1. LAMICTAL [Suspect]
     Indication: DEPRESSION
     Route: 048
     Dates: start: 20110711, end: 20110806
  2. SOTALEX [Concomitant]
     Dosage: 80MG UNKNOWN
     Route: 065
  3. ECAZIDE [Concomitant]
     Route: 065
  4. GLUCOR [Concomitant]
     Dosage: 50MG UNKNOWN
     Route: 065
  5. ZOCOR [Concomitant]
     Dosage: 20MG UNKNOWN
     Route: 065

REACTIONS (8)
  - Stevens-Johnson syndrome [Recovered/Resolved]
  - Lip oedema [Recovered/Resolved]
  - Odynophagia [Recovered/Resolved]
  - Lip blister [Recovered/Resolved]
  - Skin discolouration [Recovered/Resolved]
  - Cheilitis [Recovered/Resolved]
  - Skin lesion [Recovered/Resolved]
  - Rash [Recovered/Resolved]
